FAERS Safety Report 17766178 (Version 1)
Quarter: 2020Q2

REPORT INFORMATION
  Report Type: Spontaneous
  Country: FR (occurrence: FR)
  Receive Date: 20200511
  Receipt Date: 20200511
  Transmission Date: 20200714
  Serious: Yes (Other)
  Sender: FDA-Public Use
  Company Number: FR-JNJFOC-20191045925

PATIENT
  Age: 57 Year
  Sex: Female

DRUGS (4)
  1. PARACETAMOLO ZENTIVA ITALIA [Suspect]
     Active Substance: ACETAMINOPHEN
     Indication: ANALGESIC INTERVENTION SUPPORTIVE THERAPY
     Route: 048
     Dates: start: 20190803, end: 20190805
  2. BETADINE [Suspect]
     Active Substance: POVIDONE-IODINE
     Indication: SKIN INFECTION
     Route: 003
     Dates: start: 20190803, end: 20190803
  3. PROFENID [Suspect]
     Active Substance: KETOPROFEN
     Indication: ANTIINFLAMMATORY THERAPY
     Route: 048
     Dates: start: 20190803, end: 20190804
  4. TRAMADOL HYDROCHLORIDE. [Suspect]
     Active Substance: TRAMADOL HYDROCHLORIDE
     Indication: ANALGESIC INTERVENTION SUPPORTIVE THERAPY
     Dosage: 50 MG, 1/DAY
     Route: 048
     Dates: start: 20190803, end: 20190804

REACTIONS (4)
  - Oedema peripheral [Recovered/Resolved]
  - Eyelid oedema [Recovered/Resolved]
  - Rash pruritic [Recovered/Resolved]
  - Dermatitis bullous [Recovered/Resolved]

NARRATIVE: CASE EVENT DATE: 20190803
